FAERS Safety Report 8219865-0 (Version None)
Quarter: 2012Q1

REPORT INFORMATION
  Report Type: 
  Country: None (occurrence: None)
  Receive Date: 20120319
  Receipt Date: 20120313
  Transmission Date: 20120608
  Serious: Yes (Life-Threatening, Hospitalization)
  Sender: FDA-Public Use
  Company Number: US-ASTRAZENECA-2012SE05292

PATIENT
  Age: 43 Year
  Sex: Female
  Weight: 112.5 kg

DRUGS (8)
  1. TEGRETOL [Concomitant]
     Indication: MOOD SWINGS
     Dosage: 200 MG IN THE MORNING, 200 MG AT NOON AND 400 MG AT NIGHT
     Route: 048
  2. SEROQUEL XR [Suspect]
     Indication: BIPOLAR I DISORDER
     Route: 048
     Dates: start: 20111001
  3. SEROQUEL XR [Suspect]
     Route: 048
     Dates: start: 20110101
  4. CELEXA [Concomitant]
     Indication: DEPRESSION
     Route: 048
  5. SEROQUEL XR [Suspect]
     Route: 048
  6. SEROQUEL XR [Suspect]
     Route: 048
     Dates: start: 20111201
  7. TRAZODONE HCL [Concomitant]
     Indication: INSOMNIA
     Route: 048
  8. SEROQUEL XR [Suspect]
     Route: 048

REACTIONS (8)
  - ALCOHOLISM [None]
  - WEIGHT INCREASED [None]
  - SUICIDE ATTEMPT [None]
  - WRONG DRUG ADMINISTERED [None]
  - MENTAL DISORDER [None]
  - INSOMNIA [None]
  - TACHYPHRENIA [None]
  - DRUG DOSE OMISSION [None]
